FAERS Safety Report 5961127-6 (Version None)
Quarter: 2008Q4

REPORT INFORMATION
  Report Type: 
  Country: None (occurrence: None)
  Receive Date: 20081119
  Receipt Date: 20081107
  Transmission Date: 20090506
  Serious: Yes (Death, Other)
  Sender: FDA-Public Use
  Company Number: GXKR2008IT10673

PATIENT
  Age: 68 Year
  Sex: Male

DRUGS (12)
  1. EPIRUBICIN [Suspect]
     Indication: DIFFUSE LARGE B-CELL LYMPHOMA
  2. ETOPOSIDE [Suspect]
     Indication: DIFFUSE LARGE B-CELL LYMPHOMA
     Dosage: SEE IMAGE
  3. VINCRISTINE [Suspect]
     Indication: DIFFUSE LARGE B-CELL LYMPHOMA
     Dosage: 1.4 MG/M^2 (MAXIMUM DOSE 2 MG) ON WEEKS 2, 4, 6, 8, 10 AND 12, UNKNOWN
  4. BLEOMYCIN SULFATE [Suspect]
     Indication: DIFFUSE LARGE B-CELL LYMPHOMA
     Dosage: 10 U/M^2 ON WEEKS 2, 4, 6, 8, 10 AND 12, UNKNOWN
  5. PREDNISONE [Suspect]
     Indication: DIFFUSE LARGE B-CELL LYMPHOMA
     Dosage: 40 MG/M^2, EVERY OTHER DAY ON WEEKS 1-10 AND TAPERED DURING WEEKS 11 AND 12, ORAL
     Route: 048
  6. CYCLOPHOSPHAMIDE [Suspect]
     Indication: DIFFUSE LARGE B-CELL LYMPHOMA
     Dosage: 350 MG/M^2 ON WEEK 1, 5 AND 9
  7. IMMUNOSUPPRESSANTS (NO INGREDIENTS/SUBSTANCES) [Concomitant]
  8. CO-TRIMOXAZOLE (CO-TRIMOXAZOLE) [Concomitant]
  9. FLUCONAZOLE [Concomitant]
  10. RANITIDINE [Concomitant]
  11. ACYCLOVIR [Concomitant]
  12. VALACYCLOVIR [Concomitant]

REACTIONS (3)
  - INTERSTITIAL LUNG DISEASE [None]
  - MUCOSAL INFLAMMATION [None]
  - NEUTROPENIA [None]
